FAERS Safety Report 19092792 (Version 1)
Quarter: 2021Q2

REPORT INFORMATION
  Report Type: Spontaneous
  Country: FR (occurrence: FR)
  Receive Date: 20210405
  Receipt Date: 20210405
  Transmission Date: 20210717
  Serious: Yes (Other)
  Sender: FDA-Public Use
  Company Number: FR-SA-2021SA110475

PATIENT
  Age: 66 Year
  Sex: Male
  Weight: 105 kg

DRUGS (2)
  1. BIPROFENID [Suspect]
     Active Substance: KETOPROFEN
     Indication: PROCEDURAL PAIN
     Dosage: 2 DF,QD
     Route: 048
     Dates: start: 20191114, end: 20191120
  2. IRBESARTAN. [Suspect]
     Active Substance: IRBESARTAN
     Indication: HYPERTENSION
     Dosage: 300 MG,QD
     Route: 048
     Dates: end: 20191120

REACTIONS (1)
  - Subacute kidney injury [Not Recovered/Not Resolved]

NARRATIVE: CASE EVENT DATE: 20191120
